FAERS Safety Report 6003948-X (Version None)
Quarter: 2008Q4

REPORT INFORMATION
  Report Type: 
  Country: None (occurrence: None)
  Receive Date: 20081216
  Receipt Date: 20081204
  Transmission Date: 20090506
  Serious: Yes (Death)
  Sender: FDA-Public Use
  Company Number: JP-PFIZER INC-2008096365

PATIENT

DRUGS (8)
  1. TOPOTECIN [Suspect]
     Indication: COLON CANCER
     Dosage: 100 MG
     Route: 042
     Dates: start: 20080904, end: 20080904
  2. TEGAFUR/GIMERACIL/OTERACIL POTASSIUM [Concomitant]
     Dosage: 100 MG (50 MG, 2X/DAY)
     Route: 048
     Dates: start: 20080904
  3. HYPEN [Concomitant]
     Dosage: 200 MG (100 MG, 2X/DAY)
     Dates: start: 20080615, end: 20080916
  4. ALOSENN [Concomitant]
     Dosage: 1 G, 1X/DAY
     Route: 048
     Dates: start: 20080626, end: 20080916
  5. DAIKENTYUTO [Concomitant]
     Dosage: 7.5 (2.5 G, 3X/DAY)
     Route: 048
     Dates: start: 20080626, end: 20080916
  6. LAC B [Concomitant]
     Dosage: 3 G (1 G, 3X/DAY)
     Route: 048
     Dates: start: 20080804, end: 20080916
  7. LOPEMIN [Concomitant]
     Dosage: 4 DF (2 DF, 2X/DAY)
     Route: 048
     Dates: start: 20080101
  8. LOPEMIN [Concomitant]
     Dosage: 4 DF, 2X/DAY
     Route: 048
     Dates: start: 20080916

REACTIONS (2)
  - DIARRHOEA [None]
  - NEUTROPENIA [None]
